FAERS Safety Report 12955417 (Version 1)
Quarter: 2016Q4

REPORT INFORMATION
  Report Type: Spontaneous
  Country: US (occurrence: US)
  Receive Date: 20161118
  Receipt Date: 20161118
  Transmission Date: 20170207
  Serious: No
  Sender: FDA-Public Use
  Company Number: US-PERRIGO-16US017239

PATIENT
  Age: 56 Year
  Sex: Female
  Weight: 64.4 kg

DRUGS (1)
  1. POLYETHYLENE GLYCOL 3350. [Suspect]
     Active Substance: POLYETHYLENE GLYCOL 3350
     Indication: CONSTIPATION
     Dosage: 4 G, QD
     Route: 048
     Dates: end: 201606

REACTIONS (10)
  - Cough [Recovering/Resolving]
  - Throat irritation [Not Recovered/Not Resolved]
  - Incorrect dose administered [Recovered/Resolved]
  - Flank pain [Recovered/Resolved]
  - Oropharyngeal pain [Not Recovered/Not Resolved]
  - Choking sensation [Recovering/Resolving]
  - Exposure to unspecified agent [Recovered/Resolved]
  - Nephrolithiasis [Recovered/Resolved]
  - Incorrect drug administration duration [Recovered/Resolved]
  - Sensation of foreign body [Not Recovered/Not Resolved]

NARRATIVE: CASE EVENT DATE: 201605
